FAERS Safety Report 4539582-8 (Version None)
Quarter: 2004Q4

REPORT INFORMATION
  Report Type: 
  Country: None (occurrence: None)
  Receive Date: 20041227
  Receipt Date: 20041227
  Transmission Date: 20050328
  Serious: No
  Sender: FDA-Public Use
  Company Number: None

PATIENT
  Age: 55 Year
  Sex: Male

DRUGS (2)
  1. STRIANT [Suspect]
     Indication: ERECTILE DYSFUNCTION
     Dosage: BID ORAL CAVITY
     Route: 048
     Dates: start: 20041208
  2. STRIANT [Suspect]
     Indication: HYPOGONADISM
     Dosage: BID ORAL CAVITY
     Route: 048
     Dates: start: 20041208

REACTIONS (2)
  - GINGIVAL PAIN [None]
  - HEADACHE [None]
